FAERS Safety Report 4438464-X (Version None)
Quarter: 2004Q3

REPORT INFORMATION
  Report Type: 
  Country: None (occurrence: None)
  Receive Date: 20040728
  Receipt Date: 20040324
  Transmission Date: 20050211
  Serious: No
  Sender: FDA-Public Use
  Company Number: USA040362996

PATIENT
  Age: 14 Year
  Sex: Male
  Weight: 74 kg

DRUGS (4)
  1. STRATTERA [Suspect]
     Indication: ABNORMAL BEHAVIOUR
     Dosage: 40 MG DAY
     Dates: start: 20040308, end: 20040321
  2. STRATTERA [Suspect]
     Indication: ATTENTION DEFICIT/HYPERACTIVITY DISORDER
     Dosage: 40 MG DAY
     Dates: start: 20040308, end: 20040321
  3. CLARITIN [Concomitant]
  4. NASAL SPRAY [Concomitant]

REACTIONS (7)
  - ABNORMAL BEHAVIOUR [None]
  - AGGRESSION [None]
  - DRUG INEFFECTIVE [None]
  - INTENTIONAL SELF-INJURY [None]
  - PANIC REACTION [None]
  - SLEEP DISORDER [None]
  - SOMNOLENCE [None]
